FAERS Safety Report 6109850-7 (Version None)
Quarter: 2009Q1

REPORT INFORMATION
  Report Type: 
  Country: None (occurrence: None)
  Receive Date: 20090310
  Receipt Date: 20080711
  Transmission Date: 20090719
  Serious: No
  Sender: FDA-Public Use
  Company Number: A0737126A

PATIENT
  Sex: Female

DRUGS (1)
  1. NICORETTE [Suspect]
     Indication: ACCIDENTAL EXPOSURE
     Dates: start: 20080709, end: 20080709

REACTIONS (3)
  - ACCIDENTAL EXPOSURE [None]
  - DIZZINESS [None]
  - VOMITING [None]
